FAERS Safety Report 8005392-2 (Version None)
Quarter: 2011Q4

REPORT INFORMATION
  Report Type: 
  Country: None (occurrence: None)
  Receive Date: 20111223
  Receipt Date: 20111216
  Transmission Date: 20120403
  Serious: Yes (Other)
  Sender: FDA-Public Use
  Company Number: DE-ROCHE-1015853

PATIENT
  Sex: Female
  Weight: 73 kg

DRUGS (9)
  1. HERCEPTIN [Suspect]
     Indication: BREAST CANCER
     Route: 042
     Dates: start: 20101013
  2. CYCLOPHOSPHAMIDE [Concomitant]
     Indication: BREAST CANCER
  3. HERCEPTIN [Suspect]
     Route: 042
     Dates: start: 20110120, end: 20111007
  4. RAMIPRIL [Concomitant]
     Indication: HYPERTENSION
     Route: 048
     Dates: end: 20111108
  5. DOCETAXEL [Concomitant]
     Indication: BREAST CANCER
     Dates: start: 20101013, end: 20101124
  6. RAMIPRIL [Concomitant]
     Route: 048
     Dates: start: 20111109
  7. EPIRUBICIN [Concomitant]
     Indication: BREAST CANCER
  8. THYROXIN [Concomitant]
     Indication: HYPERTHYROIDISM
     Route: 048
  9. FLUOROURACIL [Concomitant]
     Indication: BREAST CANCER

REACTIONS (2)
  - VENTRICULAR HYPOKINESIA [None]
  - EJECTION FRACTION DECREASED [None]
